FAERS Safety Report 8237113-2 (Version None)
Quarter: 2012Q1

REPORT INFORMATION
  Report Type: 
  Country: None (occurrence: None)
  Receive Date: 20120327
  Receipt Date: 20120322
  Transmission Date: 20120608
  Serious: Yes (Hospitalization)
  Sender: FDA-Public Use
  Company Number: US-AMGEN-USASP2012016566

PATIENT
  Age: 70 Year
  Sex: Male
  Weight: 72.562 kg

DRUGS (6)
  1. LUPRON DEPOT [Concomitant]
     Indication: PROSTATE CANCER METASTATIC
     Dosage: 75 MG, QMO
  2. XGEVA [Suspect]
     Indication: PROPHYLAXIS
     Dosage: 120 MG, UNK
     Route: 058
     Dates: start: 20120220, end: 20120320
  3. NORVASC [Concomitant]
     Indication: HYPERTENSION
     Dosage: 5 MG, QD
     Route: 048
  4. TAMSULOSIN                         /01280302/ [Concomitant]
     Indication: BENIGN PROSTATIC HYPERPLASIA
     Dosage: UNK UNK, QD
     Route: 048
  5. CALCIUM CARBONATE [Concomitant]
     Indication: PROPHYLAXIS
     Dosage: 1500 MG, QD
     Route: 048
  6. OMEPRAZOLE [Concomitant]
     Dosage: 40 MG, QD
     Route: 048

REACTIONS (2)
  - BUNDLE BRANCH BLOCK [None]
  - HYPOCALCAEMIA [None]
